FAERS Safety Report 11852739 (Version 1)
Quarter: 2015Q4

REPORT INFORMATION
  Report Type: Spontaneous
  Country: JP (occurrence: JP)
  Receive Date: 20151218
  Receipt Date: 20151218
  Transmission Date: 20160305
  Serious: Yes (Other)
  Sender: FDA-Public Use
  Company Number: JP-MYLANLABS-2015M1045335

PATIENT

DRUGS (6)
  1. CICLOSPORIN [Suspect]
     Active Substance: CYCLOSPORINE
     Indication: INSULIN RESISTANCE SYNDROME
     Dosage: 100 MG/DAY, INCREASED TO 150 MG/DAY
     Route: 065
  2. INSULIN [Concomitant]
     Active Substance: INSULIN NOS
     Indication: INSULIN RESISTANCE SYNDROME
     Dosage: ~100U/DAY
     Route: 065
  3. RITUXAN [Concomitant]
     Active Substance: RITUXIMAB
     Indication: INSULIN RESISTANCE SYNDROME
     Route: 041
  4. METFORMIN [Concomitant]
     Active Substance: METFORMIN HYDROCHLORIDE
     Indication: INSULIN RESISTANCE SYNDROME
     Dosage: 500MG/DAY
     Route: 065
  5. INSULIN [Concomitant]
     Active Substance: INSULIN NOS
     Dosage: 9.0 MU/KG/MIN
     Route: 041
  6. PREDNISOLONE. [Suspect]
     Active Substance: PREDNISOLONE
     Indication: INSULIN RESISTANCE SYNDROME
     Dosage: 20MG
     Route: 048

REACTIONS (3)
  - Hyperglycaemia [Recovered/Resolved]
  - Renal impairment [Unknown]
  - Condition aggravated [Recovered/Resolved]
